FAERS Safety Report 9729410 (Version 1)
Quarter: 2013Q4

REPORT INFORMATION
  Report Type: Spontaneous
  Country: US (occurrence: US)
  Receive Date: 20131204
  Receipt Date: 20131204
  Transmission Date: 20140711
  Serious: Yes (Hospitalization)
  Sender: FDA-Public Use
  Company Number: US-GILEAD-2009-0021077

PATIENT
  Age: 64 Year
  Sex: Female
  Weight: 136.98 kg

DRUGS (11)
  1. LETAIRIS [Suspect]
     Indication: PULMONARY ARTERIAL HYPERTENSION
     Route: 048
     Dates: start: 20090122
  2. REVATIO [Concomitant]
  3. METOPROLOL [Concomitant]
  4. LASIX [Concomitant]
  5. CRESTOR [Concomitant]
  6. REQUIP [Concomitant]
  7. CYMBALTA [Concomitant]
  8. OMEPRAZOLE [Concomitant]
  9. K-DUR [Concomitant]
  10. MULTI [Concomitant]
  11. FLAXSEED OIL [Concomitant]

REACTIONS (3)
  - Respiratory distress [Not Recovered/Not Resolved]
  - Nasal congestion [Not Recovered/Not Resolved]
  - Local swelling [Not Recovered/Not Resolved]
